FAERS Safety Report 9015413 (Version 1)
Quarter: 2013Q1

REPORT INFORMATION
  Report Type: Spontaneous
  Country: US (occurrence: None)
  Receive Date: 20130102
  Receipt Date: 20130102
  Transmission Date: 20140127
  Serious: Yes (Hospitalization)
  Sender: FDA-Public Use
  Company Number: EUS-2012-00996

PATIENT
  Age: 15 Year
  Sex: Female

DRUGS (2)
  1. ERWINAZE [Suspect]
     Indication: ACUTE LYMPHOCYTIC LEUKAEMIA
     Dates: end: 20121031
  2. METHOTREXATE [Suspect]
     Indication: ACUTE LYMPHOCYTIC LEUKAEMIA

REACTIONS (3)
  - Cerebrovascular accident [None]
  - Convulsion [None]
  - Toxic encephalopathy [None]
